FAERS Safety Report 7693156-9 (Version None)
Quarter: 2011Q3

REPORT INFORMATION
  Report Type: 
  Country: None (occurrence: None)
  Receive Date: 20110815
  Receipt Date: 20110803
  Transmission Date: 20111222
  Serious: Yes (Hospitalization)
  Sender: FDA-Public Use
  Company Number: 21323

PATIENT
  Age: 84 Year
  Sex: Male

DRUGS (7)
  1. SINTROM [Suspect]
     Dosage: 2 TO 4 MG DAILY ACCORDING TO INR VALUE, ORAL
     Route: 048
     Dates: start: 19960101, end: 20100804
  2. IMOVANE (ZOPICLONE) (ZOPICLONE) [Concomitant]
  3. ESCITALOPRAM [Suspect]
     Dosage: 10 MG (10 MG, 1 IN 1 D), ORAL
     Route: 048
  4. LEVOTHYROX (LEVOTHYROXINE SODIUM) (TABLETS) (LEVOTHYROXINE SODIUM) [Concomitant]
  5. LASILIX (FUROSEMIDE) (TABLETS) (FUROSEMIDE) [Concomitant]
  6. DAONIL (GLIBENCLAMIDE) (GLIBENCLAMIDE) [Concomitant]
  7. GLUCOPHAGE (METFORMIN HYDROCHLORIDE) (TABLETS) (METFORMIN HYDROCHLORID [Concomitant]

REACTIONS (6)
  - INTERNATIONAL NORMALISED RATIO INCREASED [None]
  - CYANOSIS [None]
  - OVERDOSE [None]
  - HAEMOPTYSIS [None]
  - RESPIRATORY DISTRESS [None]
  - BRONCHOALVEOLAR LAVAGE ABNORMAL [None]
